FAERS Safety Report 10145669 (Version 1)
Quarter: 2014Q2

REPORT INFORMATION
  Report Type: Report from Study
  Country: US (occurrence: US)
  Receive Date: 20140501
  Receipt Date: 20140501
  Transmission Date: 20141212
  Serious: No
  Sender: FDA-Public Use
  Company Number: US-ABBVIE-13P-163-1136828-00

PATIENT
  Sex: Female
  Weight: 41.77 kg

DRUGS (2)
  1. CREON [Suspect]
     Indication: PANCREATITIS CHRONIC
     Dosage: 2 CAPSULES IN THE AM, 2 CAPSULES IN THE PM
  2. INSULIN [Concomitant]
     Indication: DIABETES MELLITUS

REACTIONS (3)
  - Inappropriate schedule of drug administration [Unknown]
  - Constipation [Unknown]
  - Impaired gastric emptying [Unknown]
